FAERS Safety Report 11902324 (Version 4)
Quarter: 2016Q1

REPORT INFORMATION
  Report Type: Report from Study
  Country: US (occurrence: US)
  Receive Date: 20160108
  Receipt Date: 20160111
  Transmission Date: 20160526
  Serious: No
  Sender: FDA-Public Use
  Company Number: US-ABBVIE-15P-163-1468360-00

PATIENT
  Age: 41 Year
  Sex: Male
  Weight: 112.59 kg

DRUGS (3)
  1. RIBAVIRIN AUROBINDO [Suspect]
     Active Substance: RIBAVIRIN
     Route: 048
     Dates: start: 20150910
  2. VIEKIRA PAK [Suspect]
     Active Substance: DASABUVIR\OMBITASVIR\PARITAPREVIR\RITONAVIR
     Indication: CHRONIC HEPATITIS C
     Route: 048
     Dates: start: 20150908
  3. RIBAVIRIN AUROBINDO [Suspect]
     Active Substance: RIBAVIRIN
     Indication: CHRONIC HEPATITIS C
     Route: 048
     Dates: start: 20150908, end: 20150909

REACTIONS (4)
  - Nausea [Recovered/Resolved]
  - Food poisoning [Unknown]
  - Chills [Recovered/Resolved]
  - Muscle spasms [Recovered/Resolved]

NARRATIVE: CASE EVENT DATE: 20150909
